FAERS Safety Report 8457372-0 (Version None)
Quarter: 2012Q2

REPORT INFORMATION
  Report Type: 
  Country: None (occurrence: None)
  Receive Date: 20120621
  Receipt Date: 20120618
  Transmission Date: 20120825
  Serious: No
  Sender: FDA-Public Use
  Company Number: US-PFIZER INC-2012147150

PATIENT
  Sex: Male
  Weight: 103 kg

DRUGS (12)
  1. VERAPAMIL [Concomitant]
     Dosage: (90MG AT MORNING AND 120MG AT NIGHT), UNK
  2. AVODART [Concomitant]
     Dosage: 0.5 MG, UNK
  3. AMBIEN [Concomitant]
     Indication: SLEEP DISORDER
     Dosage: UNK, 1X/DAY
  4. PREVACID [Concomitant]
     Dosage: 30 MG, UNK
  5. CALCIUM [Concomitant]
     Dosage: 600 MG, 2X/DAY
  6. ZITHROMAX [Suspect]
     Dosage: UNK
     Route: 048
     Dates: start: 20120417, end: 20120422
  7. BENICAR [Concomitant]
     Dosage: UNK
  8. TAMSULOSIN [Concomitant]
     Dosage: UNK
  9. ASCORBIC ACID [Concomitant]
     Dosage: UNK
  10. COUMADIN [Concomitant]
     Dosage: 4MG FOR FIRST DAY AND 30MG ON THE OTHER DAY
  11. ULORIC [Concomitant]
     Dosage: 40 MG, UNK
  12. KLOR-CON [Concomitant]
     Dosage: UNK, 1X/DAY

REACTIONS (7)
  - SOMNOLENCE [None]
  - ACTIVITIES OF DAILY LIVING IMPAIRED [None]
  - FATIGUE [None]
  - APHONIA [None]
  - ASTHENIA [None]
  - DIZZINESS [None]
  - OROPHARYNGEAL PAIN [None]
